FAERS Safety Report 7030152-9 (Version None)
Quarter: 2010Q4

REPORT INFORMATION
  Report Type: 
  Country: None (occurrence: None)
  Receive Date: 20101006
  Receipt Date: 20100929
  Transmission Date: 20110411
  Serious: Yes (Other)
  Sender: FDA-Public Use
  Company Number: US-SANOFI-AVENTIS-2010SA049269

PATIENT
  Age: 88 Year
  Sex: Male

DRUGS (14)
  1. LANTUS [Suspect]
     Indication: TYPE 2 DIABETES MELLITUS
     Dosage: DOSE:10 UNIT(S)
     Route: 058
     Dates: start: 20070110, end: 20100710
  2. LANTUS [Suspect]
     Dosage: DOSE:25 UNIT(S)
     Route: 058
  3. OPTICLICK [Suspect]
     Indication: TYPE 2 DIABETES MELLITUS
     Dates: start: 20070110, end: 20100710
  4. AMARYL [Suspect]
     Indication: TYPE 2 DIABETES MELLITUS
     Route: 048
  5. ALL OTHER THERAPEUTIC PRODUCTS [Concomitant]
  6. PLAVIX [Concomitant]
  7. NIASPAN [Concomitant]
  8. DIOVAN [Concomitant]
  9. LEVOTHYROXINE SODIUM [Concomitant]
  10. AVODART [Concomitant]
     Indication: PROSTATIC DISORDER
  11. UROXATRAL [Concomitant]
     Indication: PROSTATIC DISORDER
  12. MULTI-VITAMINS [Concomitant]
  13. CRESTOR [Concomitant]
  14. FEBUXOSTAT [Concomitant]
     Indication: GOUT

REACTIONS (2)
  - BLOOD GLUCOSE INCREASED [None]
  - MACULAR DEGENERATION [None]
